FAERS Safety Report 10760084 (Version 2)
Quarter: 2016Q1

REPORT INFORMATION
  Report Type: Spontaneous
  Country: US (occurrence: US)
  Receive Date: 20150204
  Receipt Date: 20160219
  Transmission Date: 20160525
  Serious: No
  Sender: FDA-Public Use
  Company Number: US-ACORDA-ACO_108412_2015

PATIENT
  Age: 27 Year
  Sex: Female

DRUGS (4)
  1. AMPYRA [Suspect]
     Active Substance: DALFAMPRIDINE
     Indication: GAIT DISTURBANCE
     Dosage: 10 MG, BID
     Route: 048
     Dates: start: 201410, end: 201501
  2. TECFIDERA [Concomitant]
     Active Substance: DIMETHYL FUMARATE
     Indication: PRODUCT USED FOR UNKNOWN INDICATION
     Dosage: 240 MG, BID
     Route: 048
     Dates: start: 20130822
  3. TYSABRI [Concomitant]
     Active Substance: NATALIZUMAB
     Indication: PRODUCT USED FOR UNKNOWN INDICATION
     Dosage: 300 MG, MONTHLY
     Route: 042
     Dates: start: 20140717
  4. AMPYRA [Suspect]
     Active Substance: DALFAMPRIDINE
     Indication: MUSCULOSKELETAL STIFFNESS

REACTIONS (3)
  - Hyperhidrosis [Recovered/Resolved]
  - Off label use [Unknown]
  - Night sweats [Recovered/Resolved]

NARRATIVE: CASE EVENT DATE: 201410
